FAERS Safety Report 8006183-9 (Version None)
Quarter: 2011Q4

REPORT INFORMATION
  Report Type: 
  Country: None (occurrence: None)
  Receive Date: 20111226
  Receipt Date: 20111202
  Transmission Date: 20120403
  Serious: Yes (Hospitalization)
  Sender: FDA-Public Use
  Company Number: PHHO2011AR020254

PATIENT
  Sex: Male
  Weight: 48 kg

DRUGS (7)
  1. BLINDED NO TREATMENT RECEIVED [Suspect]
     Dosage: DOUBLE BLINDED
     Dates: start: 20110623
  2. BLINDED QAB149 [Suspect]
     Dosage: DOUBLE BLINDED
     Dates: start: 20110623
  3. BLINDED NVA237 [Suspect]
     Dosage: DOUBLE BLINDED
     Dates: start: 20110623
  4. PLACEBO [Suspect]
     Dosage: DOUBLE BLINDED
     Dates: start: 20110623
  5. BLINDED QVA149 [Suspect]
     Dosage: DOUBLE BLINDED
     Dates: start: 20110623
  6. BLINDED TIOTROPIUM [Suspect]
     Dosage: DOUBLE BLINDED
     Dates: start: 20110623
  7. IBANDRONATE SODIUM [Concomitant]
     Indication: OSTEOPOROSIS
     Dosage: 150 MG, BID
     Route: 048
     Dates: start: 20090101

REACTIONS (1)
  - OSTEOPOROSIS [None]
